FAERS Safety Report 21524240 (Version 1)
Quarter: 2022Q4

REPORT INFORMATION
  Report Type: Spontaneous
  Country: US (occurrence: US)
  Receive Date: 20221029
  Receipt Date: 20221029
  Transmission Date: 20230112
  Serious: No
  Sender: FDA-Public Use
  Company Number: US-NOVARTISTESTPH-NVSC2022US243460

PATIENT
  Age: 2 Year
  Sex: Male

DRUGS (2)
  1. FLUOCINOLONE [Suspect]
     Active Substance: FLUOCINOLONE
     Indication: Eczema
     Route: 065
  2. TRIAMCINOLONE [Suspect]
     Active Substance: TRIAMCINOLONE
     Indication: Eczema
     Route: 065

REACTIONS (2)
  - Fatigue [Unknown]
  - Treatment failure [Unknown]

NARRATIVE: CASE EVENT DATE: 20221027
